FAERS Safety Report 8717938 (Version 2)
Quarter: 2013Q2

REPORT INFORMATION
  Report Type: Report from Study
  Country: GB (occurrence: GB)
  Receive Date: 20120810
  Receipt Date: 20130628
  Transmission Date: 20140414
  Serious: Yes (Hospitalization)
  Sender: FDA-Public Use
  Company Number: GB-ROCHE-1099606

PATIENT
  Sex: Male
  Weight: 93 kg

DRUGS (8)
  1. RITUXIMAB [Suspect]
     Indication: PRODUCT USED FOR UNKNOWN INDICATION
     Dosage: LAST DOSE PRIOR TO EVENT: 13/DEC/2011
     Route: 065
     Dates: start: 20111129
  2. METHOTREXATE [Concomitant]
  3. DIGOXIN [Concomitant]
     Route: 048
  4. BISOPROLOL [Concomitant]
     Route: 048
  5. WARFARIN [Concomitant]
     Dosage: AS PER INR
     Route: 048
  6. PARACETAMOL [Concomitant]
     Route: 048
  7. IBUPROFEN [Concomitant]
     Route: 048
  8. OMEPRAZOLE [Concomitant]
     Route: 048

REACTIONS (1)
  - Pancreatitis acute [Recovered/Resolved]
